FAERS Safety Report 8972552 (Version 1)
Quarter: 2012Q4

REPORT INFORMATION
  Report Type: Spontaneous
  Country: BR (occurrence: None)
  Receive Date: 20121207
  Receipt Date: 20121207
  Transmission Date: 20130627
  Serious: Yes (Hospitalization)
  Sender: FDA-Public Use
  Company Number: DSU-2012-09526

PATIENT
  Age: 26 Year
  Sex: Female
  Weight: 102 kg

DRUGS (1)
  1. OLMETEC HCT (HYDROCHLOROTHIAZIDE, OLMESARTAN MEDOXOMIL) (TABLET) (HYDROCHLOROTHIAZIDE, OLMESARTAN MEDOXOMIL) [Suspect]
     Route: 048
     Dates: start: 2010

REACTIONS (1)
  - Joint surgery [None]
